FAERS Safety Report 13499031 (Version 1)
Quarter: 2017Q2

REPORT INFORMATION
  Report Type: Spontaneous
  Country: FR (occurrence: FR)
  Receive Date: 20170501
  Receipt Date: 20170501
  Transmission Date: 20170830
  Serious: Yes (Other)
  Sender: FDA-Public Use
  Company Number: FR-JNJFOC-20170429886

PATIENT
  Age: 48 Year
  Sex: Male

DRUGS (1)
  1. TRAMADOL/PARACETAMOL [Suspect]
     Active Substance: ACETAMINOPHEN\TRAMADOL
     Indication: PAIN
     Route: 048
     Dates: start: 20170407, end: 20170407

REACTIONS (5)
  - Accidental overdose [Recovered/Resolved]
  - Medication error [Unknown]
  - Dizziness [Recovered/Resolved]
  - Cyanosis [Recovered/Resolved]
  - Somnolence [Recovered/Resolved]

NARRATIVE: CASE EVENT DATE: 20170407
